FAERS Safety Report 20182357 (Version 2)
Quarter: 2022Q1

REPORT INFORMATION
  Report Type: Spontaneous
  Country: IN (occurrence: IN)
  Receive Date: 20211214
  Receipt Date: 20220216
  Transmission Date: 20220424
  Serious: Yes (Death, Other)
  Sender: FDA-Public Use
  Company Number: IN-PFIZER INC-2018329700

PATIENT
  Age: 83 Year
  Sex: Male

DRUGS (2)
  1. SUTENT [Suspect]
     Active Substance: SUNITINIB MALATE
     Indication: Metastatic renal cell carcinoma
     Dosage: 50 MG, CYCLIC (ONCE DAILY FOR 2 WEEKS ON AND 1 WEEK OFF)
     Route: 048
     Dates: start: 20140709, end: 202003
  2. ZORYL [Concomitant]
     Indication: Diabetes mellitus
     Dosage: UNK

REACTIONS (9)
  - Death [Fatal]
  - Paralysis [Not Recovered/Not Resolved]
  - Dry skin [Unknown]
  - Blister [Unknown]
  - Asthenia [Unknown]
  - Arthropathy [Unknown]
  - Rash [Unknown]
  - Eye swelling [Recovering/Resolving]
  - Hypertension [Unknown]

NARRATIVE: CASE EVENT DATE: 20220112
